FAERS Safety Report 16776637 (Version 4)
Quarter: 2019Q3

REPORT INFORMATION
  Report Type: Report from Study
  Country: CN (occurrence: CN)
  Receive Date: 20190905
  Receipt Date: 20190924
  Transmission Date: 20191005
  Serious: Yes (Hospitalization)
  Sender: FDA-Public Use
  Company Number: CN-EISAI MEDICAL RESEARCH-EC-2019-061677

PATIENT
  Age: 66 Year
  Sex: Female
  Weight: 52 kg

DRUGS (7)
  1. FU FANG MU JI HE JI [Concomitant]
     Dates: start: 20190711, end: 20190816
  2. GAN FU LE [Concomitant]
     Dates: start: 20190711, end: 20190816
  3. LENVATINIB [Suspect]
     Active Substance: LENVATINIB
     Indication: HEPATOCELLULAR CARCINOMA
     Route: 048
     Dates: start: 20190820, end: 20190826
  4. LENVATINIB [Suspect]
     Active Substance: LENVATINIB
     Route: 048
     Dates: start: 20190829, end: 20190911
  5. PEMBROLIZUMAB. [Suspect]
     Active Substance: PEMBROLIZUMAB
     Indication: HEPATOCELLULAR CARCINOMA
     Dosage: BLINDED
     Route: 041
     Dates: start: 20190820, end: 20190820
  6. PEMBROLIZUMAB. [Suspect]
     Active Substance: PEMBROLIZUMAB
     Dosage: BLINDED
     Route: 041
     Dates: start: 20190912
  7. ENTECAVIR. [Concomitant]
     Active Substance: ENTECAVIR
     Dates: start: 20190708

REACTIONS (3)
  - Hepatic pain [Recovering/Resolving]
  - Decreased appetite [Recovered/Resolved]
  - Pneumonia klebsiella [Recovered/Resolved]

NARRATIVE: CASE EVENT DATE: 20190823
